FAERS Safety Report 8097159-4 (Version None)
Quarter: 2012Q1

REPORT INFORMATION
  Report Type: 
  Country: None (occurrence: None)
  Receive Date: 20120128
  Receipt Date: 20110714
  Transmission Date: 20120608
  Serious: No
  Sender: FDA-Public Use
  Company Number: US-ABBOTT-11P-163-0839095-00

PATIENT
  Age: 44 Year
  Sex: Male

DRUGS (8)
  1. POTASSIUM CITRATE [Concomitant]
     Indication: NEPHROLITHIASIS
  2. MERCAPTOPURINE [Concomitant]
     Indication: CROHN'S DISEASE
  3. FOLIC ACID [Concomitant]
     Indication: VITAMIN SUPPLEMENTATION
  4. MULTI-VITAMIN [Concomitant]
     Indication: VITAMIN SUPPLEMENTATION
  5. VITAMIN D [Concomitant]
     Indication: VITAMIN D
  6. HUMIRA [Suspect]
     Indication: CROHN'S DISEASE
     Dates: start: 20110228
  7. PENTASA [Concomitant]
     Indication: CROHN'S DISEASE
  8. CALCIUM CITRATE [Concomitant]
     Indication: MINERAL SUPPLEMENTATION

REACTIONS (1)
  - INJECTION SITE PAIN [None]
